FAERS Safety Report 19514663 (Version 1)
Quarter: 2021Q3

REPORT INFORMATION
  Report Type: Report from Study
  Country: None (occurrence: AT)
  Receive Date: 20210709
  Receipt Date: 20210709
  Transmission Date: 20211014
  Serious: Yes (Hospitalization)
  Sender: FDA-Public Use
  Company Number: AT-ABBVIE-21K-009-3983681-00

PATIENT
  Sex: Female

DRUGS (2)
  1. HUMIRA [Suspect]
     Active Substance: ADALIMUMAB
     Indication: RHEUMATOID ARTHRITIS
     Dosage: STOPPED TWO WEEKS PRIOR TO SURGERY
     Route: 058
     Dates: start: 2012, end: 202103
  2. HUMIRA [Suspect]
     Active Substance: ADALIMUMAB
     Dosage: STARTED TWO WEEKS AFTER SURGERY
     Route: 058
     Dates: start: 202104

REACTIONS (5)
  - Hysterectomy [Unknown]
  - Impaired healing [Unknown]
  - Bone pain [Unknown]
  - Salpingectomy [Unknown]
  - Connective tissue disorder [Unknown]

NARRATIVE: CASE EVENT DATE: 2012
